FAERS Safety Report 26106233 (Version 1)
Quarter: 2025Q4

REPORT INFORMATION
  Report Type: Spontaneous
  Country: US (occurrence: US)
  Receive Date: 20251201
  Receipt Date: 20251201
  Transmission Date: 20260117
  Serious: Yes (Death, Hospitalization)
  Sender: NORTHSTAR
  Company Number: US-NORTHSTAR RX LLC-US-2025NSR000087

PATIENT
  Age: 11 Year
  Sex: Female

DRUGS (6)
  1. HYDROXYZINE HYDROCHLORIDE [Suspect]
     Active Substance: HYDROXYZINE HYDROCHLORIDE
     Indication: Headache
     Dosage: UNK
     Route: 048
  2. WATER [Suspect]
     Active Substance: WATER
     Indication: Headache
     Dosage: UNK
     Route: 048
  3. SERTRALINE [Suspect]
     Active Substance: SERTRALINE HYDROCHLORIDE
     Indication: Headache
     Dosage: UNK
     Route: 048
  4. ACETAMINOPHEN [Suspect]
     Active Substance: ACETAMINOPHEN
     Indication: Headache
     Dosage: UNK
     Route: 048
  5. IBUPROFEN [Suspect]
     Active Substance: IBUPROFEN
     Indication: Headache
     Dosage: UNK
     Route: 048
  6. BUPROPION [Suspect]
     Active Substance: BUPROPION
     Indication: Headache

REACTIONS (3)
  - Toxicity to various agents [Fatal]
  - Medication error [Fatal]
  - Off label use [Fatal]

NARRATIVE: CASE EVENT DATE: 20230101
